FAERS Safety Report 6503464-2 (Version None)
Quarter: 2009Q4

REPORT INFORMATION
  Report Type: 
  Country: None (occurrence: None)
  Receive Date: 20091217
  Receipt Date: 20091120
  Transmission Date: 20100525
  Serious: No
  Sender: FDA-Public Use
  Company Number: US-BAYER-200917150BCC

PATIENT
  Age: 79 Year
  Sex: Male
  Weight: 100 kg

DRUGS (8)
  1. ALEVE (CAPLET) [Suspect]
     Indication: ARTHRITIS
     Dosage: TOTAL DAILY DOSE: 440 MG  UNIT DOSE: 220 MG
     Route: 048
     Dates: start: 20091106, end: 20091120
  2. METPHORUM [Concomitant]
     Route: 065
  3. LISINOPRIL [Concomitant]
     Route: 065
  4. SULFURMALAZINE [Concomitant]
     Route: 065
  5. SIMVASTATIN [Concomitant]
     Route: 065
  6. ALINAPRIL [Concomitant]
     Route: 065
  7. ACETAMORPHIN [Concomitant]
     Route: 065
  8. ASPIRIN [Concomitant]
     Route: 065

REACTIONS (1)
  - ARTHRITIS [None]
